FAERS Safety Report 7496181-6 (Version None)
Quarter: 2011Q2

REPORT INFORMATION
  Report Type: 
  Country: None (occurrence: None)
  Receive Date: 20110523
  Receipt Date: 20110513
  Transmission Date: 20111010
  Serious: Yes (Hospitalization)
  Sender: FDA-Public Use
  Company Number: PHHY2011US41184

PATIENT
  Sex: Female

DRUGS (3)
  1. RECLAST [Suspect]
     Dosage: 5 MG, YEARLY
     Route: 042
  2. PHENERGAN HCL [Concomitant]
  3. PREDNISONE [Concomitant]

REACTIONS (1)
  - DYSURIA [None]
